FAERS Safety Report 6265805-3 (Version None)
Quarter: 2009Q3

REPORT INFORMATION
  Report Type: 
  Country: None (occurrence: None)
  Receive Date: 20090713
  Receipt Date: 20090701
  Transmission Date: 20100115
  Serious: Yes (Hospitalization, Congenital Anomaly)
  Sender: FDA-Public Use
  Company Number: A0785724A

PATIENT
  Sex: Male

DRUGS (5)
  1. PAXIL [Suspect]
     Indication: DEPRESSION
     Dosage: 20MG PER DAY
     Dates: start: 20040519, end: 20051111
  2. VITAMIN TAB [Concomitant]
  3. LOVENOX [Concomitant]
     Dosage: 60MG PER DAY
     Route: 048
  4. FOLIC ACID [Concomitant]
  5. FERROUS SULFATE TAB [Concomitant]

REACTIONS (5)
  - BRONCHOPULMONARY DYSPLASIA [None]
  - CONGENITAL ANOMALY [None]
  - DRUG EXPOSURE DURING PREGNANCY [None]
  - PERSISTENT FOETAL CIRCULATION [None]
  - VENTRICULAR SEPTAL DEFECT [None]
